FAERS Safety Report 8741289 (Version 2)
Quarter: 2012Q4

REPORT INFORMATION
  Report Type: 
  Country: US (occurrence: US)
  Receive Date: 20120824
  Receipt Date: 20121003
  Transmission Date: 20130627
  Serious: No
  Sender: FDA-Public Use
  Company Number: US-ASTRAZENECA-2012SE15107

PATIENT
  Age: 49 Year
  Sex: Female

DRUGS (1)
  1. SYMBICORT PMDI [Suspect]
     Route: 055
     Dates: start: 201112

REACTIONS (5)
  - Malaise [Unknown]
  - Sinusitis [Unknown]
  - Bronchitis [Unknown]
  - Respiratory tract infection [Unknown]
  - Dysphonia [Unknown]
